FAERS Safety Report 5337812-6 (Version None)
Quarter: 2007Q2

REPORT INFORMATION
  Report Type: 
  Country: None (occurrence: None)
  Receive Date: 20070309
  Receipt Date: 20060308
  Transmission Date: 20071010
  Serious: Yes (Hospitalization, Other)
  Sender: FDA-Public Use
  Company Number: US200511002006

PATIENT
  Age: 72 Year
  Sex: Female
  Weight: 73.9 kg

DRUGS (19)
  1. GEMZAR [Suspect]
     Indication: NON-SMALL CELL LUNG CANCER STAGE IIIB
     Dosage: 1100 MG/M2, OTHER, INTRAVENOUS
     Route: 042
     Dates: start: 20050628
  2. GEMZAR [Suspect]
     Indication: NON-SMALL CELL LUNG CANCER STAGE IIIB
     Dosage: 1100 MG/M2, OTHER, INTRAVENOUS
     Route: 042
     Dates: start: 20050713
  3. GEMZAR [Suspect]
     Indication: NON-SMALL CELL LUNG CANCER STAGE IIIB
     Dosage: 1100 MG/M2, OTHER, INTRAVENOUS
     Route: 042
     Dates: start: 20050804
  4. GEMZAR [Suspect]
     Indication: NON-SMALL CELL LUNG CANCER STAGE IIIB
     Dosage: 1100 MG/M2, OTHER, INTRAVENOUS
     Route: 042
     Dates: start: 20050823
  5. GEMZAR [Suspect]
     Indication: NON-SMALL CELL LUNG CANCER STAGE IIIB
     Dosage: 1100 MG/M2, OTHER, INTRAVENOUS
     Route: 042
     Dates: start: 20050830
  6. GEMZAR [Suspect]
     Indication: NON-SMALL CELL LUNG CANCER STAGE IIIB
     Dosage: 1100 MG/M2, OTHER, INTRAVENOUS
     Route: 042
     Dates: start: 20050913
  7. GEMZAR [Suspect]
     Indication: NON-SMALL CELL LUNG CANCER STAGE IIIB
     Dosage: 1100 MG/M2, OTHER, INTRAVENOUS
     Route: 042
     Dates: start: 20051004
  8. GEMZAR [Suspect]
     Indication: NON-SMALL CELL LUNG CANCER STAGE IIIB
     Dosage: 1100 MG/M2, OTHER, INTRAVENOUS
     Route: 042
     Dates: start: 20051011
  9. GEMZAR [Suspect]
     Indication: NON-SMALL CELL LUNG CANCER STAGE IIIB
     Dosage: 1100 MG/M2, OTHER, INTRAVENOUS
     Route: 042
     Dates: start: 20051115
  10. CARBOPLATIN [Concomitant]
  11. NEULASTA [Concomitant]
  12. ARANESP [Concomitant]
  13. ZOFRAN [Concomitant]
  14. MAGNESIUM SULFATE [Concomitant]
  15. POTASSIUM CHLORIDE [Concomitant]
  16. DECADRON [Concomitant]
  17. PALONOSETRON HYDROCHLORIDE (PALONOSETRON HYDROCHLORIDE) [Concomitant]
  18. HEPARIN [Concomitant]
  19. ANZEMET [Concomitant]

REACTIONS (14)
  - ALANINE AMINOTRANSFERASE INCREASED [None]
  - ASPARTATE AMINOTRANSFERASE INCREASED [None]
  - BLOOD ALKALINE PHOSPHATASE INCREASED [None]
  - BLOOD CREATININE INCREASED [None]
  - BLOOD UREA INCREASED [None]
  - CONTUSION [None]
  - GINGIVAL BLEEDING [None]
  - HAEMATOCRIT DECREASED [None]
  - HAEMATURIA [None]
  - HAEMOGLOBIN DECREASED [None]
  - PLATELET COUNT DECREASED [None]
  - PLATELET COUNT INCREASED [None]
  - WHITE BLOOD CELL COUNT DECREASED [None]
  - WHITE BLOOD CELL COUNT INCREASED [None]
